FAERS Safety Report 8136433-X (Version None)
Quarter: 2012Q1

REPORT INFORMATION
  Report Type: 
  Country: None (occurrence: None)
  Receive Date: 20120209
  Receipt Date: 20120201
  Transmission Date: 20120608
  Serious: Yes (Other)
  Sender: FDA-Public Use
  Company Number: A0964843A

PATIENT
  Age: 50 Year
  Sex: Male

DRUGS (4)
  1. NEVIRAPINE [Concomitant]
  2. RITONAVIR [Suspect]
     Indication: HIV INFECTION
     Dates: start: 20060301
  3. FOSAMPRENAVIR CALCIUM [Suspect]
     Indication: HIV INFECTION
     Dates: start: 20060301
  4. THYROXINE SODIUM (FORMULATION UNKNOWN) (GENERIC) (LEVOTHYROXINE SODIUM [Suspect]
     Indication: BASEDOW'S DISEASE

REACTIONS (2)
  - HYPOTHYROIDISM [None]
  - DRUG INTERACTION [None]
